FAERS Safety Report 5027427-1 (Version None)
Quarter: 2006Q2

REPORT INFORMATION
  Report Type: 
  Country: None (occurrence: None)
  Receive Date: 20060501
  Receipt Date: 20060117
  Transmission Date: 20061013
  Serious: No
  Sender: FDA-Public Use
  Company Number: 200610337BWH

PATIENT
  Age: 60 Year

DRUGS (4)
  1. NEXAVAR [Suspect]
     Indication: METASTATIC RENAL CELL CARCINOMA
     Dosage: 400 MG, BID, ORAL
     Route: 048
     Dates: start: 20051201, end: 20060113
  2. METFORMIN [Concomitant]
  3. OXYCODONE HCL [Concomitant]
  4. GEMFIBROZIL [Concomitant]

REACTIONS (6)
  - EAR PAIN [None]
  - FLUSHING [None]
  - INSOMNIA [None]
  - MYALGIA [None]
  - PRURITUS [None]
  - SKIN BURNING SENSATION [None]
